FAERS Safety Report 14380220 (Version 1)
Quarter: 2018Q1

REPORT INFORMATION
  Report Type: Spontaneous
  Country: US (occurrence: US)
  Receive Date: 20180111
  Receipt Date: 20180111
  Transmission Date: 20180509
  Serious: Yes (Other)
  Sender: FDA-Public Use
  Company Number: None

PATIENT
  Age: 40 Year
  Sex: Male
  Weight: 123.75 kg

DRUGS (16)
  1. TRINTELLIX [Concomitant]
     Active Substance: VORTIOXETINE HYDROBROMIDE
  2. QUETIAPINE ER [Concomitant]
     Active Substance: QUETIAPINE
  3. HUMERA [Concomitant]
     Active Substance: ADALIMUMAB
  4. BUPROPION XL [Concomitant]
     Active Substance: BUPROPION
  5. LEVOTHYROXINE. [Concomitant]
     Active Substance: LEVOTHYROXINE
  6. VITAMIN D [Concomitant]
     Active Substance: CHOLECALCIFEROL
  7. AVEED [Concomitant]
     Active Substance: TESTOSTERONE UNDECANOATE
  8. CENTRUM MEN [Concomitant]
  9. OMEGA 3 FISH OIL [Concomitant]
     Active Substance: FISH OIL\OMEGA-3 FATTY ACIDS
  10. NAPROXEN. [Concomitant]
     Active Substance: NAPROXEN
  11. METHYLPHENIDATE ER 54 MG TAB [Suspect]
     Active Substance: METHYLPHENIDATE HYDROCHLORIDE
     Indication: ATTENTION DEFICIT/HYPERACTIVITY DISORDER
     Dosage: ?          QUANTITY:1 TABLET(S);?
     Route: 048
  12. METHOTREXATE. [Concomitant]
     Active Substance: METHOTREXATE
  13. LITHIUM. [Concomitant]
     Active Substance: LITHIUM
  14. PHILLIPS DREAMMACHINE AUTOPAP [Concomitant]
  15. DICLOFENAC [Concomitant]
     Active Substance: DICLOFENAC
  16. IBUPROFEN. [Concomitant]
     Active Substance: IBUPROFEN

REACTIONS (4)
  - Hyperhidrosis [None]
  - Palpitations [None]
  - Drug effect variable [None]
  - Product substitution issue [None]

NARRATIVE: CASE EVENT DATE: 20180110
